FAERS Safety Report 20237110 (Version 1)
Quarter: 2021Q4

REPORT INFORMATION
  Report Type: Spontaneous
  Country: JP (occurrence: JP)
  Receive Date: 20211228
  Receipt Date: 20211228
  Transmission Date: 20220303
  Serious: Yes (Hospitalization, Other)
  Sender: FDA-Public Use
  Company Number: JP-ELI_LILLY_AND_COMPANY-JP202112010584

PATIENT
  Age: 66 Year
  Sex: Female

DRUGS (3)
  1. VERZENIO [Suspect]
     Active Substance: ABEMACICLIB
     Indication: Breast cancer metastatic
     Route: 048
  2. FULVESTRANT [Concomitant]
     Active Substance: FULVESTRANT
  3. HYDROCORTISONE [Concomitant]
     Active Substance: HYDROCORTISONE
     Route: 048

REACTIONS (2)
  - Adrenocortical insufficiency acute [Recovering/Resolving]
  - Gastrointestinal disorder [Recovering/Resolving]
